FAERS Safety Report 8463569-6 (Version None)
Quarter: 2012Q2

REPORT INFORMATION
  Report Type: 
  Country: None (occurrence: None)
  Receive Date: 20120625
  Receipt Date: 20120621
  Transmission Date: 20120825
  Serious: No
  Sender: FDA-Public Use
  Company Number: US-TEVA-344610USA

PATIENT
  Age: 16 Year
  Sex: Female
  Weight: 68.1 kg

DRUGS (1)
  1. PLAN B ONE-STEP [Suspect]
     Indication: POST COITAL CONTRACEPTION
     Dosage: 1.5 MILLIGRAM;
     Route: 048
     Dates: start: 20120617, end: 20120617

REACTIONS (5)
  - MICTURITION URGENCY [None]
  - DYSURIA [None]
  - PELVIC PAIN [None]
  - CHROMATURIA [None]
  - HEADACHE [None]
